FAERS Safety Report 17312864 (Version 2)
Quarter: 2020Q1

REPORT INFORMATION
  Report Type: Spontaneous
  Country: US (occurrence: US)
  Receive Date: 20200124
  Receipt Date: 20200204
  Transmission Date: 20200409
  Serious: Yes (Other)
  Sender: FDA-Public Use
  Company Number: US-AUROBINDO-AUR-APL-2020-004016

PATIENT
  Sex: Female

DRUGS (1)
  1. REPAGLINIDE TABLETS USP 1MG [Suspect]
     Active Substance: REPAGLINIDE
     Indication: DIABETES MELLITUS
     Dosage: 1 MILLIGRAM
     Route: 065

REACTIONS (1)
  - Angina pectoris [Unknown]
